FAERS Safety Report 4781282-3 (Version None)
Quarter: 2005Q3

REPORT INFORMATION
  Report Type: 
  Country: None (occurrence: None)
  Receive Date: 20050914
  Receipt Date: 20050412
  Transmission Date: 20060218
  Serious: Yes (Other)
  Sender: FDA-Public Use
  Company Number: 163-20785-05040264

PATIENT
  Age: 80 Year
  Sex: Male

DRUGS (2)
  1. THALOMID [Suspect]
     Indication: REFRACTORY ANAEMIA WITH AN EXCESS OF BLASTS
     Dosage: 100 MG, QHS, ORAL
     Route: 048
     Dates: start: 20050114, end: 20050314
  2. PROCRIT [Concomitant]

REACTIONS (2)
  - CEREBROVASCULAR ACCIDENT [None]
  - ORTHOSTATIC HYPOTENSION [None]
